FAERS Safety Report 18498488 (Version 1)
Quarter: 2020Q4

REPORT INFORMATION
  Report Type: Spontaneous
  Country: TR (occurrence: TR)
  Receive Date: 20201113
  Receipt Date: 20201113
  Transmission Date: 20210114
  Serious: Yes (Life-Threatening, Hospitalization, Other)
  Sender: FDA-Public Use
  Company Number: TR-AMGEN-TURSP2020179756

PATIENT
  Age: 37 Year
  Sex: Male

DRUGS (1)
  1. FILGRASTIM [Suspect]
     Active Substance: FILGRASTIM
     Indication: PANCYTOPENIA
     Dosage: UNK (30 MIU/0.5 ML)
     Route: 058

REACTIONS (11)
  - Splenic artery aneurysm [Recovered/Resolved]
  - Abdominal wall abscess [Recovered/Resolved]
  - Candida sepsis [Recovered/Resolved]
  - Capillary leak syndrome [Recovered/Resolved]
  - Splenic rupture [Recovered/Resolved]
  - Multiple organ dysfunction syndrome [Recovered/Resolved]
  - Septic shock [Recovered/Resolved]
  - Off label use [Unknown]
  - Urinary retention [Recovered/Resolved]
  - Haemoglobin decreased [Recovered/Resolved]
  - Splenomegaly [Recovered/Resolved]
